FAERS Safety Report 11536891 (Version 1)
Quarter: 2015Q3

REPORT INFORMATION
  Report Type: Spontaneous
  Country: US (occurrence: None)
  Receive Date: 20150921
  Receipt Date: 20150921
  Transmission Date: 20151125
  Serious: Yes (Life-Threatening, Hospitalization, Other)
  Sender: FDA-Public Use
  Company Number: None

PATIENT
  Age: 38 Year
  Sex: Female
  Weight: 78.93 kg

DRUGS (3)
  1. AVASTIN [Suspect]
     Active Substance: BEVACIZUMAB
  2. OXYCODONE [Concomitant]
     Active Substance: OXYCODONE
  3. FOLFOX [Suspect]
     Active Substance: FLUOROURACIL\LEUCOVORIN CALCIUM\OXALIPLATIN
     Indication: METASTATIC CARCINOID TUMOUR
     Dosage: 1 CYCLE ON 8/12/15
     Dates: start: 20150812

REACTIONS (2)
  - Abdominal pain [None]
  - Large intestine perforation [None]

NARRATIVE: CASE EVENT DATE: 20150819
